FAERS Safety Report 4455492-9 (Version None)
Quarter: 2004Q3

REPORT INFORMATION
  Report Type: 
  Country: None (occurrence: None)
  Receive Date: 20040917
  Receipt Date: 20040907
  Transmission Date: 20050211
  Serious: Yes (Hospitalization, Other)
  Sender: FDA-Public Use
  Company Number: 2004063490

PATIENT
  Sex: Female
  Weight: 70.3075 kg

DRUGS (4)
  1. NEURONTIN [Suspect]
     Indication: ANXIETY
     Dosage: 1600 MG (400 MG, 4 IN 1 D), ORAL
     Route: 048
  2. NEURONTIN [Suspect]
     Indication: STRESS SYMPTOMS
     Dosage: 1600 MG (400 MG, 4 IN 1 D), ORAL
     Route: 048
  3. ERYTHROMYCIN [Concomitant]
  4. CITALOPRAM HYDROBROMIDE (CITALOPRAM HYDROBROMIDE) [Concomitant]

REACTIONS (6)
  - HOT FLUSH [None]
  - HYPERHIDROSIS [None]
  - MARITAL PROBLEM [None]
  - MENTAL DISORDER [None]
  - MID-LIFE CRISIS [None]
  - SUICIDAL IDEATION [None]
